FAERS Safety Report 20975662 (Version 1)
Quarter: 2022Q2

REPORT INFORMATION
  Report Type: Spontaneous
  Country: US (occurrence: US)
  Receive Date: 20220617
  Receipt Date: 20220617
  Transmission Date: 20220721
  Serious: No
  Sender: FDA-Public Use
  Company Number: US-PFIZER INC-202200843433

PATIENT
  Age: 39 Year
  Sex: Female

DRUGS (1)
  1. XELJANZ [Suspect]
     Active Substance: TOFACITINIB CITRATE
     Dosage: 5 MG, 2X/DAY, (ONCE IN THE MORNING AND ONCE IN THE EVENING)
     Route: 048

REACTIONS (3)
  - Nausea [Not Recovered/Not Resolved]
  - Drug ineffective [Unknown]
  - Eating disorder [Unknown]
